FAERS Safety Report 6127913-7 (Version None)
Quarter: 2009Q1

REPORT INFORMATION
  Report Type: 
  Country: None (occurrence: None)
  Receive Date: 20090323
  Receipt Date: 20090317
  Transmission Date: 20090719
  Serious: Yes (Death, Hospitalization)
  Sender: FDA-Public Use
  Company Number: US-BAYER-200915656NA

PATIENT
  Age: 62 Year
  Sex: Female
  Weight: 85 kg

DRUGS (6)
  1. SORAFENIB [Suspect]
     Indication: NON-SMALL CELL LUNG CANCER
     Dosage: TOTAL DAILY DOSE: 800 MG  UNIT DOSE: 200 MG
     Route: 048
     Dates: start: 20070515, end: 20070527
  2. HYDROCODONE BITARTRATE AND ACETAMINOPHEN [Concomitant]
  3. INDERAL LA [Concomitant]
  4. OXYCODONE HCL EXTENDED-RELEASE [Concomitant]
  5. TRIAMTERENE [Concomitant]
  6. COUMADIN [Concomitant]

REACTIONS (3)
  - DYSPNOEA AT REST [None]
  - EMBOLISM [None]
  - FATIGUE [None]
